FAERS Safety Report 15796206 (Version 2)
Quarter: 2019Q1

REPORT INFORMATION
  Report Type: Spontaneous
  Country: US (occurrence: US)
  Receive Date: 20190108
  Receipt Date: 20190129
  Transmission Date: 20190417
  Serious: No
  Sender: FDA-Public Use
  Company Number: US-BIOGEN-2018BI00675346

PATIENT
  Age: 48 Year
  Sex: Male

DRUGS (2)
  1. TECFIDERA [Suspect]
     Active Substance: DIMETHYL FUMARATE
     Route: 065
     Dates: start: 20181225
  2. TECFIDERA [Suspect]
     Active Substance: DIMETHYL FUMARATE
     Indication: MULTIPLE SCLEROSIS
     Route: 065
     Dates: start: 20181218

REACTIONS (4)
  - Fatigue [Recovered/Resolved with Sequelae]
  - Flushing [Not Recovered/Not Resolved]
  - Abdominal discomfort [Recovered/Resolved]
  - Dyspepsia [Unknown]

NARRATIVE: CASE EVENT DATE: 20181220
